FAERS Safety Report 5706021-0 (Version None)
Quarter: 2008Q2

REPORT INFORMATION
  Report Type: 
  Country: None (occurrence: None)
  Receive Date: 20080411
  Receipt Date: 20080401
  Transmission Date: 20081010
  Serious: Yes (Hospitalization)
  Sender: FDA-Public Use
  Company Number: 2008AL001976

PATIENT
  Age: 11 Year
  Sex: Female

DRUGS (2)
  1. CLONIDINE HYDROCHLORIDE [Suspect]
     Indication: TOURETTE'S DISORDER
     Dosage: 25 UG; QID;
  2. RISPERIDONE [Concomitant]

REACTIONS (5)
  - ADVERSE EVENT [None]
  - DRUG EFFECT DECREASED [None]
  - GENERAL PHYSICAL HEALTH DETERIORATION [None]
  - HEART RATE INCREASED [None]
  - TRANSIENT ISCHAEMIC ATTACK [None]
